FAERS Safety Report 7467169-6 (Version None)
Quarter: 2011Q2

REPORT INFORMATION
  Report Type: 
  Country: None (occurrence: None)
  Receive Date: 20110509
  Receipt Date: 20110225
  Transmission Date: 20111010
  Serious: No
  Sender: FDA-Public Use
  Company Number: US-SANOFI-AVENTIS-2011SA013047

PATIENT
  Age: 80 Year
  Sex: Female

DRUGS (5)
  1. LANTUS [Suspect]
     Indication: TYPE 2 DIABETES MELLITUS
     Dosage: DOSE:50 UNIT(S)
     Route: 058
     Dates: start: 20100301
  2. GLIPIZIDE [Concomitant]
     Route: 065
  3. LANTUS [Suspect]
     Indication: TYPE 2 DIABETES MELLITUS
     Dates: start: 20110223
  4. LANTUS [Suspect]
     Dates: start: 20100301
  5. APIDRA [Suspect]
     Indication: TYPE 2 DIABETES MELLITUS
     Dosage: DOSE:4 UNIT(S)
     Route: 058
     Dates: start: 20110223

REACTIONS (7)
  - PALPITATIONS [None]
  - BLOOD GLUCOSE INCREASED [None]
  - NIGHTMARE [None]
  - TREMOR [None]
  - DYSPHONIA [None]
  - HEART RATE INCREASED [None]
  - GLYCOSYLATED HAEMOGLOBIN INCREASED [None]
